FAERS Safety Report 11667902 (Version 3)
Quarter: 2016Q1

REPORT INFORMATION
  Report Type: Report from Study
  Country: US (occurrence: US)
  Receive Date: 20151027
  Receipt Date: 20160113
  Transmission Date: 20160525
  Serious: Yes (Hospitalization, Other)
  Sender: FDA-Public Use
  Company Number: PHEH2015US021037

PATIENT
  Age: 61 Year
  Sex: Female
  Weight: 86.17 kg

DRUGS (1)
  1. GILENYA [Suspect]
     Active Substance: FINGOLIMOD HYDROCHLORIDE
     Indication: MULTIPLE SCLEROSIS
     Dosage: 0.5 MG, QD
     Route: 048
     Dates: start: 2011

REACTIONS (18)
  - Intervertebral disc degeneration [Not Recovered/Not Resolved]
  - Rheumatic fever [Unknown]
  - Neck pain [Unknown]
  - Swelling face [Unknown]
  - Mastication disorder [Unknown]
  - Vision blurred [Not Recovered/Not Resolved]
  - Tooth infection [Not Recovered/Not Resolved]
  - Tremor [Not Recovered/Not Resolved]
  - Thinking abnormal [Not Recovered/Not Resolved]
  - Fall [Unknown]
  - Body height decreased [Not Recovered/Not Resolved]
  - Memory impairment [Not Recovered/Not Resolved]
  - Eye swelling [Unknown]
  - Tongue haemorrhage [Unknown]
  - Back pain [Not Recovered/Not Resolved]
  - Local swelling [Unknown]
  - Headache [Unknown]
  - Limb discomfort [Not Recovered/Not Resolved]

NARRATIVE: CASE EVENT DATE: 20151229
